FAERS Safety Report 25917414 (Version 2)
Quarter: 2025Q4

REPORT INFORMATION
  Report Type: Spontaneous
  Country: AR (occurrence: AR)
  Receive Date: 20251014
  Receipt Date: 20251113
  Transmission Date: 20260117
  Serious: Yes (Other)
  Sender: SANDOZ
  Company Number: AR-SANDOZ-SDZ2025AR021374

PATIENT
  Sex: Male
  Weight: 47 kg

DRUGS (4)
  1. OMNITROPE [Suspect]
     Active Substance: SOMATROPIN
     Indication: Growth hormone deficiency
     Dosage: 1.1 MG, 7 TIMES PER WEEK
     Route: 058
     Dates: start: 20250213
  2. OMNITROPE [Suspect]
     Active Substance: SOMATROPIN
     Indication: Growth retardation
     Dosage: 1.2 MG 7 DAYS A WEEK (OMNITROPE 10 MG)
     Route: 058
     Dates: start: 2025
  3. VITAMIN D [Concomitant]
     Active Substance: VITAMIN D NOS
     Dosage: HALF A TABLET OF PER DAY
     Route: 065
  4. VITAMIN D [Concomitant]
     Active Substance: VITAMIN D NOS
     Indication: Product used for unknown indication
     Dosage: ONE AMPOULE, TOOK ONCE
     Route: 065

REACTIONS (5)
  - Growth retardation [Unknown]
  - Somnolence [Unknown]
  - Thyroid disorder [Unknown]
  - Fatigue [Unknown]
  - Headache [Unknown]

NARRATIVE: CASE EVENT DATE: 20250101
